FAERS Safety Report 4610209-X (Version None)
Quarter: 2005Q1

REPORT INFORMATION
  Report Type: 
  Country: None (occurrence: None)
  Receive Date: 20050315
  Receipt Date: 20050302
  Transmission Date: 20050727
  Serious: Yes (Hospitalization)
  Sender: FDA-Public Use
  Company Number: 2005039025

PATIENT
  Age: 16 Year
  Sex: Male

DRUGS (1)
  1. VISINE EYE DROPS [Suspect]
     Indication: ACCIDENTAL EXPOSURE
     Dosage: { 15 ML ONCE, ORAL
     Route: 048

REACTIONS (10)
  - ACCIDENTAL EXPOSURE [None]
  - BODY TEMPERATURE DECREASED [None]
  - DIZZINESS [None]
  - FATIGUE [None]
  - HYPOTENSION [None]
  - PALLOR [None]
  - RESPIRATORY RATE INCREASED [None]
  - SINUS BRADYCARDIA [None]
  - SOMNOLENCE [None]
  - VICTIM OF CRIME [None]
